FAERS Safety Report 5923131-3 (Version None)
Quarter: 2008Q4

REPORT INFORMATION
  Report Type: 
  Country: None (occurrence: None)
  Receive Date: 20081015
  Receipt Date: 20081008
  Transmission Date: 20090506
  Serious: Yes (Hospitalization)
  Sender: FDA-Public Use
  Company Number: 035052

PATIENT
  Age: 54 Year
  Sex: Male

DRUGS (2)
  1. NALBUPRHINE HCL INJECTION (NALBUPHINE HYDROCHLORIDE) INJECTION, 100MG [Suspect]
     Dates: end: 20080912
  2. FENTANYL (FENTANYL) 100 MSG/HR [Suspect]
     Dosage: TRANSDERMAL

REACTIONS (11)
  - BURNING SENSATION [None]
  - CHILLS [None]
  - DIARRHOEA [None]
  - DISTURBANCE IN ATTENTION [None]
  - DRUG INTERACTION [None]
  - HYPERHIDROSIS [None]
  - MUSCLE SPASMS [None]
  - MUSCLE TWITCHING [None]
  - PARANOIA [None]
  - VISION BLURRED [None]
  - YAWNING [None]
